FAERS Safety Report 22222397 (Version 1)
Quarter: 2023Q2

REPORT INFORMATION
  Report Type: Spontaneous
  Country: FR (occurrence: FR)
  Receive Date: 20230418
  Receipt Date: 20230418
  Transmission Date: 20230722
  Serious: Yes (Other)
  Sender: FDA-Public Use
  Company Number: None

PATIENT

DRUGS (5)
  1. LAMICTAL [Suspect]
     Active Substance: LAMOTRIGINE
     Indication: Epilepsy
     Dosage: 200 MG (10 CP OF 200 MG)
     Route: 048
     Dates: start: 20221031, end: 20221031
  2. OXAZEPAM [Suspect]
     Active Substance: OXAZEPAM
     Indication: Anxiety
     Dosage: UNK (2 CP)
     Route: 048
     Dates: start: 20221031, end: 20221031
  3. VENLAFAXINE [Suspect]
     Active Substance: VENLAFAXINE HYDROCHLORIDE
     Indication: Depression
     Dosage: 75 MG (20 CP OF 75 MG)
     Route: 048
     Dates: start: 20221031, end: 20221031
  4. ZOPICLONE [Suspect]
     Active Substance: ZOPICLONE
     Indication: Insomnia
     Dosage: 7.5 MG (16 CP OF 7.5 MG)
     Route: 048
     Dates: start: 20221031, end: 20221031
  5. CYAMEMAZINE [Suspect]
     Active Substance: CYAMEMAZINE
     Indication: Psychotic disorder
     Dosage: 25 MG (30 CP OF 25 MG)
     Route: 048
     Dates: start: 20221031, end: 20221031

REACTIONS (1)
  - Drug abuse [Recovered/Resolved]

NARRATIVE: CASE EVENT DATE: 20221031
